FAERS Safety Report 11688676 (Version 1)
Quarter: 2015Q4

REPORT INFORMATION
  Report Type: Spontaneous
  Country: CN (occurrence: CN)
  Receive Date: 20151102
  Receipt Date: 20151102
  Transmission Date: 20160304
  Serious: Yes (Other)
  Sender: FDA-Public Use
  Company Number: CN-JNJFOC-20151017184

PATIENT
  Age: 9 Month
  Sex: Male
  Weight: 10 kg

DRUGS (5)
  1. CEFOTAXIME SODIUM [Suspect]
     Active Substance: CEFOTAXIME SODIUM
     Indication: UPPER RESPIRATORY TRACT INFECTION
     Route: 042
     Dates: start: 20150524, end: 20150528
  2. RIBAVIRIN. [Suspect]
     Active Substance: RIBAVIRIN
     Indication: UPPER RESPIRATORY TRACT INFECTION
     Route: 042
     Dates: start: 20150524, end: 20150528
  3. TYLENOL [Suspect]
     Active Substance: ACETAMINOPHEN
     Route: 048
  4. GLYCYRRHIZIC ACID [Suspect]
     Active Substance: GLYCYRRHIZIN
     Indication: UPPER RESPIRATORY TRACT INFECTION
     Route: 042
     Dates: start: 20150524, end: 20150528
  5. TYLENOL [Suspect]
     Active Substance: ACETAMINOPHEN
     Indication: PYREXIA
     Route: 048
     Dates: start: 20150524, end: 20150528

REACTIONS (4)
  - Hepatic enzyme increased [Recovered/Resolved]
  - Aspartate aminotransferase increased [None]
  - Granulocytopenia [Recovered/Resolved]
  - Alanine aminotransferase increased [None]

NARRATIVE: CASE EVENT DATE: 20150528
